FAERS Safety Report 12514950 (Version 3)
Quarter: 2020Q2

REPORT INFORMATION
  Report Type: Spontaneous
  Country: US (occurrence: US)
  Receive Date: 20160630
  Receipt Date: 20200529
  Transmission Date: 20200713
  Serious: Yes (Hospitalization)
  Sender: FDA-Public Use
  Company Number: US-JNJFOC-20160525770

PATIENT
  Age: 72 Year
  Sex: Male

DRUGS (4)
  1. COUMADIN [Suspect]
     Active Substance: WARFARIN SODIUM
     Indication: PRODUCT USED FOR UNKNOWN INDICATION
     Route: 065
  2. XARELTO [Suspect]
     Active Substance: RIVAROXABAN
     Indication: DEEP VEIN THROMBOSIS
     Route: 048
     Dates: start: 20130820, end: 2013
  3. XARELTO [Suspect]
     Active Substance: RIVAROXABAN
     Indication: PULMONARY EMBOLISM
     Route: 048
     Dates: start: 20130926, end: 20140117
  4. XARELTO [Suspect]
     Active Substance: RIVAROXABAN
     Indication: CARDIAC OPERATION
     Route: 048
     Dates: start: 2014, end: 20140403

REACTIONS (3)
  - Intracranial haematoma [Unknown]
  - Haematoma muscle [Recovering/Resolving]
  - Coagulopathy [Unknown]

NARRATIVE: CASE EVENT DATE: 201404
